FAERS Safety Report 10418384 (Version 1)
Quarter: 2014Q3

REPORT INFORMATION
  Report Type: Spontaneous
  Country: US (occurrence: None)
  Receive Date: 20140827
  Receipt Date: 20140827
  Transmission Date: 20150326
  Serious: Yes (Life-Threatening, Other)
  Sender: FDA-Public Use
  Company Number: 2014AMD00072

PATIENT
  Age: 21 Month
  Sex: Female

DRUGS (4)
  1. EPINEPHRINE (EPINEPHRINE) INTRAVENOUS [Suspect]
     Active Substance: EPINEPHRINE HYDROCHLORIDE
     Indication: ANAPHYLACTIC REACTION
     Route: 030
  2. EPINEPHRINE. [Suspect]
     Active Substance: EPINEPHRINE
     Indication: ANAPHYLACTIC REACTION
     Dosage: RESPIRATORY
  3. ANTIHISTIAMINIC MEDICATION [Concomitant]
  4. EPINEPHRINE (EPINEPHRINE) INTRAVENOUS [Suspect]
     Active Substance: EPINEPHRINE HYDROCHLORIDE
     Indication: ANAPHYLACTIC REACTION
     Dosage: 1 UG/KG, CONTINUOUS/MIN
     Route: 042

REACTIONS (5)
  - Pulmonary oedema [None]
  - Hypotension [None]
  - Poor peripheral circulation [None]
  - Stress cardiomyopathy [None]
  - Sinus tachycardia [None]
